FAERS Safety Report 23596334 (Version 1)
Quarter: 2024Q1

REPORT INFORMATION
  Report Type: Spontaneous
  Country: US (occurrence: None)
  Receive Date: 20240304
  Receipt Date: 20240304
  Transmission Date: 20240410
  Serious: Yes (Other)
  Sender: FDA-Public Use
  Company Number: None

PATIENT
  Age: 45 Year
  Sex: Female
  Weight: 75.6 kg

DRUGS (9)
  1. SUBLOCADE [Suspect]
     Active Substance: BUPRENORPHINE
     Indication: Drug dependence
     Dates: start: 20240117
  2. PROZAC [Concomitant]
     Active Substance: FLUOXETINE HYDROCHLORIDE
  3. TOPAMAX [Concomitant]
     Active Substance: TOPIRAMATE
  4. SYNTHROID [Concomitant]
     Active Substance: LEVOTHYROXINE SODIUM
  5. ELAVIL [Concomitant]
     Active Substance: AMITRIPTYLINE HYDROCHLORIDE
  6. MIRTAZAPINE [Concomitant]
     Active Substance: MIRTAZAPINE
  7. clonozapan [Concomitant]
  8. VITAMINS [Concomitant]
     Active Substance: VITAMINS
  9. bariadvantage Allergy [Concomitant]

REACTIONS (28)
  - Anxiety [None]
  - Euphoric mood [None]
  - Somnolence [None]
  - Fall [None]
  - Head injury [None]
  - Limb injury [None]
  - Back injury [None]
  - Dysgraphia [None]
  - Hallucination, visual [None]
  - Insomnia [None]
  - Mood altered [None]
  - Mental impairment [None]
  - Memory impairment [None]
  - Impaired work ability [None]
  - Muscle twitching [None]
  - Injection site mass [None]
  - Incorrect dose administered [None]
  - Fatigue [None]
  - Asthenia [None]
  - Vertigo [None]
  - Constipation [None]
  - Impaired driving ability [None]
  - Victim of sexual abuse [None]
  - Memory impairment [None]
  - Weight increased [None]
  - Peripheral swelling [None]
  - Peripheral swelling [None]
  - Abnormal behaviour [None]

NARRATIVE: CASE EVENT DATE: 20240117
